FAERS Safety Report 19042434 (Version 1)
Quarter: 2021Q1

REPORT INFORMATION
  Report Type: Report from Study
  Country: CO (occurrence: CO)
  Receive Date: 20210322
  Receipt Date: 20210322
  Transmission Date: 20210420
  Serious: Yes (Life-Threatening, Hospitalization)
  Sender: FDA-Public Use
  Company Number: NVSC2021CO065053

PATIENT
  Sex: Male

DRUGS (1)
  1. COSENTYX [Suspect]
     Active Substance: SECUKINUMAB
     Indication: FOETAL EXPOSURE DURING PREGNANCY
     Dosage: UNK UNK, UNKNOWN (MATERNAL EXPOSURE BEFORE PREGNANCY)
     Route: 064

REACTIONS (3)
  - Maternal exposure during pregnancy [Unknown]
  - Blood bilirubin increased [Unknown]
  - Yellow skin [Unknown]
